FAERS Safety Report 13609360 (Version 1)
Quarter: 2017Q2

REPORT INFORMATION
  Report Type: Spontaneous
  Country: US (occurrence: US)
  Receive Date: 20170602
  Receipt Date: 20170602
  Transmission Date: 20170830
  Serious: No
  Sender: FDA-Public Use
  Company Number: US-KADMON PHARMACEUTICALS, LLC-KAD201607-002588

PATIENT
  Age: 65 Year
  Sex: Female

DRUGS (8)
  1. DANDELION ROOT [Concomitant]
     Indication: PROPHYLAXIS
  2. INTERFERON [Suspect]
     Active Substance: INTERFERON
     Dates: start: 2002
  3. VITAMIN B12 [Concomitant]
     Active Substance: CYANOCOBALAMIN
  4. INTERFERON [Suspect]
     Active Substance: INTERFERON
     Dates: start: 1999
  5. MILK THISTLE [Concomitant]
     Active Substance: MILK THISTLE
     Indication: PROPHYLAXIS
  6. RIBAVIRIN. [Suspect]
     Active Substance: RIBAVIRIN
     Indication: HEPATITIS C
     Route: 048
     Dates: start: 1999
  7. PEGASYS [Suspect]
     Active Substance: PEGINTERFERON ALFA-2A
     Indication: HEPATITIS C
  8. RIBAVIRIN. [Suspect]
     Active Substance: RIBAVIRIN
     Route: 048
     Dates: start: 2002

REACTIONS (16)
  - Dislocation of vertebra [Unknown]
  - Tooth loss [Unknown]
  - Plantar fasciitis [Unknown]
  - Respiration abnormal [Recovering/Resolving]
  - Injury [Unknown]
  - Irritable bowel syndrome [Unknown]
  - Lung disorder [Unknown]
  - Synovial cyst [Unknown]
  - Therapy non-responder [Unknown]
  - Therapy non-responder [Unknown]
  - Anger [Unknown]
  - Thyroid disorder [Unknown]
  - Fatigue [Unknown]
  - Viral load increased [Unknown]
  - Alopecia [Unknown]
  - Weight increased [Unknown]

NARRATIVE: CASE EVENT DATE: 1999
